FAERS Safety Report 22044733 (Version 1)
Quarter: 2023Q1

REPORT INFORMATION
  Report Type: Spontaneous
  Country: US (occurrence: None)
  Receive Date: 20230227
  Receipt Date: 20230227
  Transmission Date: 20230417
  Serious: Yes (Life-Threatening, Hospitalization)
  Sender: FDA-Public Use
  Company Number: None

PATIENT
  Age: 68 Year
  Sex: Female
  Weight: 171.45 kg

DRUGS (2)
  1. ELITEK [Suspect]
     Active Substance: RASBURICASE
     Indication: Hyperuricaemia
     Dosage: OTHER FREQUENCY : ONCE;?
     Route: 042
     Dates: start: 20230217, end: 20230217
  2. ELITEK [Suspect]
     Active Substance: RASBURICASE
     Indication: Hyperuricaemia
     Dosage: OTHER FREQUENCY : ONCE;?
     Route: 042
     Dates: start: 20230217, end: 20230217

REACTIONS (5)
  - Hypoxia [None]
  - Methaemoglobinaemia [None]
  - Hepatic failure [None]
  - Condition aggravated [None]
  - Injection related reaction [None]

NARRATIVE: CASE EVENT DATE: 20230217
